FAERS Safety Report 9158126 (Version 1)
Quarter: 2013Q1

REPORT INFORMATION
  Report Type: Spontaneous
  Country: US (occurrence: US)
  Receive Date: 20130312
  Receipt Date: 20130312
  Transmission Date: 20140127
  Serious: Yes (Hospitalization)
  Sender: FDA-Public Use
  Company Number: US-ROCHE-1198579

PATIENT
  Age: 61 Year
  Sex: Female

DRUGS (19)
  1. VEMURAFENIB [Suspect]
     Indication: MALIGNANT MELANOMA
     Route: 065
     Dates: start: 20130107
  2. NIVOLUMAB [Suspect]
     Indication: METASTATIC MALIGNANT MELANOMA
     Route: 042
     Dates: start: 20121105, end: 20121227
  3. ATENOLOL [Concomitant]
     Route: 065
     Dates: start: 20120501
  4. HYDROCODONE/ACETAMINOPHEN [Concomitant]
     Route: 065
     Dates: start: 20121109
  5. LIDOCAINE/PRILOCAINE [Concomitant]
     Route: 065
     Dates: start: 20121203
  6. PEPCID AC [Concomitant]
     Route: 065
     Dates: start: 20121109
  7. LEVOTHYROXINE [Concomitant]
  8. ALEVE [Concomitant]
  9. METHYLPREDNISOLONE [Concomitant]
  10. BENADRYL [Concomitant]
     Route: 065
     Dates: start: 20121109
  11. ATARAX [Concomitant]
     Route: 065
     Dates: start: 20121109
  12. OMEPRAZOLE [Concomitant]
  13. AQUAPHOR (XIPAMIDE) [Concomitant]
  14. MIRALAX [Concomitant]
  15. ALPRAZOLAM [Concomitant]
  16. PREDNISONE [Concomitant]
  17. HEPARIN [Concomitant]
  18. IMMUNE GLOBULIN [Concomitant]
  19. INSULIN ASPART [Concomitant]

REACTIONS (3)
  - Renal failure acute [Recovered/Resolved]
  - Muscular weakness [Recovered/Resolved]
  - Hyponatraemia [Recovered/Resolved]
